FAERS Safety Report 8902322 (Version 1)
Quarter: 2012Q4

REPORT INFORMATION
  Report Type: 
  Country: US (occurrence: US)
  Receive Date: 20121112
  Receipt Date: 20121112
  Transmission Date: 20130627
  Serious: No
  Sender: FDA-Public Use
  Company Number: US-PFIZER INC-2012281506

PATIENT
  Age: 70 Year
  Sex: Male
  Weight: 66.67 kg

DRUGS (4)
  1. LYRICA [Suspect]
     Indication: PAIN
     Dosage: 75 mg, 2x/day
     Route: 048
     Dates: start: 20121108
  2. LYRICA [Suspect]
     Indication: SHINGLES
  3. IBUPROFEN [Concomitant]
     Indication: PAIN
     Dosage: 400 mg, 1x/day
     Dates: end: 20121107
  4. IBUPROFEN [Concomitant]
     Indication: SHINGLES

REACTIONS (5)
  - Drug ineffective [Unknown]
  - Fatigue [Recovered/Resolved]
  - Dizziness [Recovered/Resolved]
  - Paraesthesia [Recovered/Resolved]
  - Feeling abnormal [Recovered/Resolved]
